FAERS Safety Report 4622657-2 (Version None)
Quarter: 2005Q1

REPORT INFORMATION
  Report Type: 
  Country: None (occurrence: None)
  Receive Date: 20050330
  Receipt Date: 20050309
  Transmission Date: 20050727
  Serious: Yes (Other)
  Sender: FDA-Public Use
  Company Number: JP-MERCK-0503USA01664

PATIENT
  Age: 82 Year
  Sex: Female

DRUGS (12)
  1. PRIMAXIN [Suspect]
     Indication: PNEUMONIA
     Route: 042
     Dates: start: 20050225, end: 20050304
  2. CALBLOCK [Concomitant]
     Route: 048
  3. CLARITHROMYCIN [Concomitant]
     Route: 048
  4. LENDORM [Concomitant]
     Route: 048
  5. ROHYPNOL [Concomitant]
     Route: 065
  6. MUCOSOLVAN [Concomitant]
     Route: 048
  7. HUSTAZOL [Concomitant]
     Route: 048
  8. [THERAPY UNSPECIFIED] [Concomitant]
     Route: 042
  9. PEPCID [Concomitant]
     Route: 065
  10. VITAMEDIN [Concomitant]
     Route: 065
  11. TAMIFLU [Concomitant]
     Indication: INFLUENZA
     Route: 048
     Dates: start: 20050223
  12. PENTCILLIN [Concomitant]
     Route: 042
     Dates: start: 20050223

REACTIONS (2)
  - CONVULSION [None]
  - LOSS OF CONSCIOUSNESS [None]
